FAERS Safety Report 6423624-9 (Version None)
Quarter: 2009Q4

REPORT INFORMATION
  Report Type: 
  Country: None (occurrence: None)
  Receive Date: 20091102
  Receipt Date: 20091023
  Transmission Date: 20100525
  Serious: Yes (Other)
  Sender: FDA-Public Use
  Company Number: DE-ABBOTT-09P-062-0569413-00

PATIENT
  Sex: Female
  Weight: 75 kg

DRUGS (3)
  1. REDUCTIL [Suspect]
     Indication: WEIGHT CONTROL
     Route: 048
     Dates: start: 20060101, end: 20060101
  2. REDUCTIL [Suspect]
     Route: 048
     Dates: start: 20070101, end: 20070101
  3. REDUCTIL [Suspect]
     Route: 048
     Dates: start: 20080301, end: 20080301

REACTIONS (3)
  - MALIGNANT MELANOMA [None]
  - PRECANCEROUS SKIN LESION [None]
  - SENSATION OF FOREIGN BODY [None]
